FAERS Safety Report 7240630-5 (Version None)
Quarter: 2011Q1

REPORT INFORMATION
  Report Type: 
  Country: None (occurrence: None)
  Receive Date: 20110120
  Receipt Date: 20110120
  Transmission Date: 20110831
  Serious: Yes (Hospitalization, Disabling)
  Sender: FDA-Public Use
  Company Number: None

PATIENT

DRUGS (1)
  1. MINOCYCLINE 100MG 2X / DAY [Suspect]

REACTIONS (5)
  - VISUAL ACUITY REDUCED [None]
  - MASS [None]
  - ABNORMAL SENSATION IN EYE [None]
  - HEADACHE [None]
  - OPTIC NERVE DISORDER [None]
